FAERS Safety Report 14965482 (Version 1)
Quarter: 2018Q2

REPORT INFORMATION
  Report Type: Report from Study
  Country: CA (occurrence: CA)
  Receive Date: 20180601
  Receipt Date: 20180601
  Transmission Date: 20180711
  Serious: Yes (Hospitalization)
  Sender: FDA-Public Use
  Company Number: CA-HLSUS-2018-CA-000549

PATIENT
  Sex: Male

DRUGS (1)
  1. CLOZARIL [Suspect]
     Active Substance: CLOZAPINE
     Route: 048
     Dates: start: 20120504, end: 20180309

REACTIONS (7)
  - Dysphagia [Unknown]
  - Paraneoplastic syndrome [Unknown]
  - Delirium [Unknown]
  - Motor dysfunction [Unknown]
  - Agitation [Unknown]
  - Aggression [Unknown]
  - Thyroid cancer [Unknown]
